FAERS Safety Report 24205311 (Version 1)
Quarter: 2024Q3

REPORT INFORMATION
  Report Type: Spontaneous
  Country: US (occurrence: US)
  Receive Date: 20240813
  Receipt Date: 20240813
  Transmission Date: 20241016
  Serious: Yes (Other)
  Sender: FRESENIUS KABI
  Company Number: US-FreseniusKabi-FK202412296

PATIENT
  Age: 76 Year
  Sex: Female

DRUGS (1)
  1. SMOFLIPID [Suspect]
     Active Substance: FISH OIL\MEDIUM-CHAIN TRIGLYCERIDES\OLIVE OIL\SOYBEAN OIL
     Indication: Product used for unknown indication
     Dosage: DOSE AND FREQUENCY: ASKED BUT UNKNOWN?FORM OF ADMIN: INJECTABLE EMULSION
     Route: 042
     Dates: start: 20240805, end: 20240805

REACTIONS (4)
  - Nausea [Recovered/Resolved]
  - Vomiting [Recovered/Resolved]
  - Chills [Recovered/Resolved]
  - Oxygen saturation decreased [Recovered/Resolved]

NARRATIVE: CASE EVENT DATE: 20240805
